FAERS Safety Report 8619449-6 (Version None)
Quarter: 2012Q3

REPORT INFORMATION
  Report Type: 
  Country: None (occurrence: None)
  Receive Date: 20120824
  Receipt Date: 20120815
  Transmission Date: 20120928
  Serious: Yes (Hospitalization, Disabling, Other)
  Sender: FDA-Public Use
  Company Number: US-009507513-1207USA003701

PATIENT

DRUGS (5)
  1. FOSAMAX [Suspect]
     Indication: OSTEOPENIA
     Dosage: 70 MG, UNK
     Route: 048
     Dates: start: 20020301
  2. ALENDRONATE SODIUM [Suspect]
     Indication: OSTEOPOROSIS
  3. ALENDRONATE SODIUM [Suspect]
  4. FOSAMAX [Suspect]
     Indication: OSTEOPOROSIS
     Dosage: 10 MG, UNK
     Route: 048
     Dates: end: 20080201
  5. ALENDRONATE SODIUM [Suspect]
     Indication: OSTEOPENIA
     Dosage: 10 MG, QD
     Route: 048
     Dates: start: 20080201, end: 20101001

REACTIONS (33)
  - LOW TURNOVER OSTEOPATHY [None]
  - MULTIPLE FRACTURES [None]
  - TOOTH EXTRACTION [None]
  - RETINAL DETACHMENT [None]
  - ARTHRALGIA [None]
  - OESTROGEN DEFICIENCY [None]
  - STRESS FRACTURE [None]
  - ONYCHOMYCOSIS [None]
  - CATARACT NUCLEAR [None]
  - CERVICAL POLYP [None]
  - PAIN IN EXTREMITY [None]
  - FOOT FRACTURE [None]
  - OSTEOPOROSIS [None]
  - FALL [None]
  - DENTAL OPERATION [None]
  - MACULAR FIBROSIS [None]
  - HAEMATURIA [None]
  - NAIL DISCOLOURATION [None]
  - IMPAIRED HEALING [None]
  - AMENORRHOEA [None]
  - STRESS URINARY INCONTINENCE [None]
  - HYPERLIPIDAEMIA [None]
  - COSTOCHONDRITIS [None]
  - HYPERTHYROIDISM [None]
  - TRIGGER FINGER [None]
  - HYPOTHYROIDISM [None]
  - SYNOVIAL CYST [None]
  - FEMUR FRACTURE [None]
  - BLOOD PRESSURE INCREASED [None]
  - LIMB OPERATION [None]
  - ROAD TRAFFIC ACCIDENT [None]
  - EYE OPERATION [None]
  - PAIN [None]
